FAERS Safety Report 21986366 (Version 6)
Quarter: 2024Q1

REPORT INFORMATION
  Report Type: Spontaneous
  Country: US (occurrence: US)
  Receive Date: 20230213
  Receipt Date: 20240111
  Transmission Date: 20240410
  Serious: No
  Sender: FDA-Public Use
  Company Number: US-BRISTOL-MYERS SQUIBB COMPANY-2023-020737

PATIENT
  Age: 78 Year
  Sex: Male
  Weight: 66.22 kg

DRUGS (2)
  1. REVLIMID [Suspect]
     Active Substance: LENALIDOMIDE
     Indication: Plasma cell myeloma
     Route: 048
     Dates: start: 20220901
  2. REVLIMID [Suspect]
     Active Substance: LENALIDOMIDE
     Dates: start: 2023

REACTIONS (6)
  - Hypoaesthesia [Not Recovered/Not Resolved]
  - Off label use [Unknown]
  - Paraesthesia [Unknown]
  - Chills [Not Recovered/Not Resolved]
  - Oropharyngeal pain [Recovering/Resolving]
  - Fatigue [Not Recovered/Not Resolved]
